APPROVED DRUG PRODUCT: VIRA-A
Active Ingredient: VIDARABINE
Strength: 3%
Dosage Form/Route: OINTMENT;OPHTHALMIC
Application: N050486 | Product #001
Applicant: PARKEDALE PHARMACEUTICALS INC
Approved: Approved Prior to Jan 1, 1982 | RLD: No | RS: No | Type: DISCN